FAERS Safety Report 10446883 (Version 2)
Quarter: 2014Q4

REPORT INFORMATION
  Report Type: Spontaneous
  Country: US (occurrence: US)
  Receive Date: 20140911
  Receipt Date: 20141007
  Transmission Date: 20150528
  Serious: No
  Sender: FDA-Public Use
  Company Number: US-009507513-1409USA002346

PATIENT
  Age: 17 Year
  Sex: Female
  Weight: 63.49 kg

DRUGS (1)
  1. IMPLANON [Suspect]
     Active Substance: ETONOGESTREL
     Indication: CONTRACEPTION
     Dosage: 1 ROD / 3 YEARS, INSERTED IN LEFT ARM
     Route: 059
     Dates: start: 20080824

REACTIONS (3)
  - Incorrect drug administration duration [Unknown]
  - Polymenorrhoea [Unknown]
  - Mood swings [Unknown]

NARRATIVE: CASE EVENT DATE: 20110824
